FAERS Safety Report 13544298 (Version 1)
Quarter: 2017Q2

REPORT INFORMATION
  Report Type: Spontaneous
  Country: DE (occurrence: DE)
  Receive Date: 20170515
  Receipt Date: 20170515
  Transmission Date: 20170830
  Serious: Yes (Other)
  Sender: FDA-Public Use
  Company Number: DE-TORRENT-00006496

PATIENT
  Age: 36 Year
  Sex: Female
  Weight: 81 kg

DRUGS (2)
  1. FOLIO [Concomitant]
     Active Substance: FOLIC ACID
  2. VENLAFAXINE [Suspect]
     Active Substance: VENLAFAXINE HYDROCHLORIDE

REACTIONS (2)
  - Exposure during pregnancy [Unknown]
  - Gestational diabetes [Recovered/Resolved]
